FAERS Safety Report 9107544 (Version 1)
Quarter: 2013Q1

REPORT INFORMATION
  Report Type: Spontaneous
  Country: IT (occurrence: IT)
  Receive Date: 20130221
  Receipt Date: 20130221
  Transmission Date: 20140127
  Serious: Yes (Hospitalization, Other)
  Sender: FDA-Public Use
  Company Number: IT-PFIZER INC-2013015950

PATIENT
  Age: 50 Year
  Sex: Female

DRUGS (5)
  1. SUTENT [Suspect]
     Indication: RENAL CELL CARCINOMA
     Dosage: 50 MG, DAILY
     Route: 048
     Dates: start: 20120501
  2. SUTENT [Suspect]
     Dosage: 37.5 MG, 1X/DAY
     Dates: start: 201211
  3. TAPAZOLE [Suspect]
     Indication: HYPERTHYROIDISM
     Dosage: 15 MG, DAILY (3 TABLETS)
     Route: 048
     Dates: start: 20121016
  4. LANSOX [Concomitant]
  5. CO-EFFERALGAN [Concomitant]

REACTIONS (10)
  - Nausea [Recovering/Resolving]
  - Diarrhoea [Recovering/Resolving]
  - Abdominal pain upper [Recovering/Resolving]
  - Syncope [Unknown]
  - Electrocardiogram abnormal [Unknown]
  - Feeling hot [Unknown]
  - Dizziness [Unknown]
  - Vomiting [Unknown]
  - Fall [Unknown]
  - Contusion [Unknown]
